FAERS Safety Report 6781503-1 (Version None)
Quarter: 2010Q2

REPORT INFORMATION
  Report Type: 
  Country: None (occurrence: None)
  Receive Date: 20100615
  Receipt Date: 20100602
  Transmission Date: 20101027
  Serious: Yes (Other)
  Sender: FDA-Public Use
  Company Number: 2010EU002268

PATIENT
  Age: 56 Year
  Sex: Female

DRUGS (1)
  1. VESICARE [Suspect]
     Dosage: 5MG, D

REACTIONS (1)
  - ABDOMINAL DISTENSION [None]
